FAERS Safety Report 10385562 (Version 2)
Quarter: 2014Q4

REPORT INFORMATION
  Report Type: Spontaneous
  Country: DK (occurrence: DK)
  Receive Date: 20140814
  Receipt Date: 20141223
  Transmission Date: 20150528
  Serious: Yes (Hospitalization, Other)
  Sender: FDA-Public Use
  Company Number: DK-BAXTER-2014BAX046560

PATIENT
  Age: 69 Year
  Sex: Male

DRUGS (13)
  1. SENDOXAN [Suspect]
     Active Substance: CYCLOPHOSPHAMIDE
     Dosage: SERIES: 3-8
     Route: 048
     Dates: start: 20110203
  2. SENDOXAN [Suspect]
     Active Substance: CYCLOPHOSPHAMIDE
     Indication: CHRONIC LYMPHOCYTIC LEUKAEMIA
     Dosage: SERIES: 1
     Route: 048
     Dates: start: 20100819, end: 20110203
  3. ADRIAMYCIN [Suspect]
     Active Substance: DOXORUBICIN HYDROCHLORIDE
     Indication: DIFFUSE LARGE B-CELL LYMPHOMA
     Dosage: PATIENT RECEIVED 6 SERIES
     Route: 042
     Dates: start: 20130424, end: 20130807
  4. MABTHERA [Suspect]
     Active Substance: RITUXIMAB
     Dosage: SERIES: 3-8
     Route: 042
  5. MABTHERA [Suspect]
     Active Substance: RITUXIMAB
     Indication: CHRONIC LYMPHOCYTIC LEUKAEMIA
     Dosage: PATIENT RECEIVED 7 SERIES
     Route: 042
     Dates: start: 20100819, end: 20110203
  6. SENDOXAN [Suspect]
     Active Substance: CYCLOPHOSPHAMIDE
     Dosage: R-CHOP21
     Route: 048
     Dates: start: 2013
  7. PREDNISOLON [Suspect]
     Active Substance: PREDNISOLONE
     Indication: DIFFUSE LARGE B-CELL LYMPHOMA
     Route: 048
  8. SENDOXAN [Suspect]
     Active Substance: CYCLOPHOSPHAMIDE
     Dosage: SERIES: 2
     Route: 048
     Dates: start: 20100909
  9. CAELYX [Suspect]
     Active Substance: DOXORUBICIN HYDROCHLORIDE
     Indication: CHRONIC LYMPHOCYTIC LEUKAEMIA
     Dosage: STRENGTH: 2 MG/ML.2 SERIES GIVEN.
     Route: 042
     Dates: start: 20130828, end: 20130918
  10. MABTHERA [Suspect]
     Active Substance: RITUXIMAB
     Dosage: PATIENT RECEIVED 6 SERIES
     Route: 042
     Dates: start: 20110701, end: 20111123
  11. FLUDARA [Suspect]
     Active Substance: FLUDARABINE PHOSPHATE
     Indication: CHRONIC LYMPHOCYTIC LEUKAEMIA
     Dosage: CYCLES: 2,3,8 OF 1-8 SERIES
     Route: 048
     Dates: start: 20100930, end: 20101031
  12. LEVACT [Suspect]
     Active Substance: BENDAMUSTINE HYDROCHLORIDE
     Indication: CHRONIC LYMPHOCYTIC LEUKAEMIA
     Dosage: CYCLES: 1-6
     Route: 042
     Dates: start: 20110701, end: 20111123
  13. ONCOVIN [Suspect]
     Active Substance: VINCRISTINE SULFATE
     Indication: DIFFUSE LARGE B-CELL LYMPHOMA
     Dosage: 8 SERIES GIVEN. PATIENT RECEIVED 1MG OR 2MG, DURING THE 8 SERIES PATIENT RECEIVED 11MG IN TOTAL
     Route: 042
     Dates: start: 20130424, end: 20130918

REACTIONS (4)
  - Pleural effusion [Recovered/Resolved]
  - Cardiac failure [Not Recovered/Not Resolved]
  - Lung infiltration [Recovered/Resolved with Sequelae]
  - Febrile neutropenia [Unknown]

NARRATIVE: CASE EVENT DATE: 201305
